FAERS Safety Report 22049192 (Version 1)
Quarter: 2023Q1

REPORT INFORMATION
  Report Type: Spontaneous
  Country: US (occurrence: US)
  Receive Date: 20230301
  Receipt Date: 20230301
  Transmission Date: 20230418
  Serious: No
  Sender: FDA-Public Use
  Company Number: US-BAYER-2023A019792

PATIENT
  Age: 43 Year
  Sex: Female

DRUGS (2)
  1. ALEVE [Suspect]
     Active Substance: NAPROXEN SODIUM
     Dosage: UNK
  2. CIBINQO [Concomitant]
     Active Substance: ABROCITINIB
     Dosage: 100 MG 1 TABLET DAILY

REACTIONS (1)
  - Food allergy [Unknown]
